FAERS Safety Report 8520704-9 (Version None)
Quarter: 2012Q3

REPORT INFORMATION
  Report Type: 
  Country: None (occurrence: None)
  Receive Date: 20120705
  Receipt Date: 20120619
  Transmission Date: 20120928
  Serious: Yes (Other)
  Sender: FDA-Public Use
  Company Number: CA-1192920

PATIENT
  Age: 40 Year
  Sex: Female

DRUGS (6)
  1. PREDNISOLONE SODIUM [Suspect]
     Indication: CORNEAL INFILTRATES
     Dosage: OU OPHTHALMIC, TAPERING OPTHALMIC
     Route: 047
  2. VIGAMOX [Suspect]
     Indication: CORNEAL INFILTRATES
     Dosage: 6X/DAY OU, OPHTHALMIC
     Route: 047
  3. PREDNISOLONE ACETATE [Suspect]
     Indication: CORNEAL INFILTRATES
     Dosage: 1% Q1H, OU , OPHTHALMIC
     Route: 047
  4. PREDNISOLONE [Concomitant]
  5. OMEPRAZOLE [Concomitant]
  6. DOXYCYCLINE [Concomitant]

REACTIONS (4)
  - DISEASE RECURRENCE [None]
  - KERATITIS [None]
  - EYE OPERATION COMPLICATION [None]
  - CORNEAL INFILTRATES [None]
